FAERS Safety Report 7435496-4 (Version None)
Quarter: 2011Q2

REPORT INFORMATION
  Report Type: 
  Country: None (occurrence: None)
  Receive Date: 20110425
  Receipt Date: 20110419
  Transmission Date: 20111010
  Serious: Yes (Other)
  Sender: FDA-Public Use
  Company Number: RU-GENZYME-FLUD-1001082

PATIENT
  Age: 16 Year
  Sex: Female

DRUGS (11)
  1. CYCLOSPORINE [Suspect]
     Indication: PROPHYLAXIS AGAINST GRAFT VERSUS HOST DISEASE
     Dosage: UNK
     Route: 065
  2. VINCRISTINE [Concomitant]
     Indication: PRODUCT USED FOR UNKNOWN INDICATION
     Dosage: UNK
     Route: 065
  3. MYCOPHENOLATE MOFETIL [Concomitant]
     Indication: PROPHYLAXIS AGAINST GRAFT VERSUS HOST DISEASE
     Dosage: UNK
     Route: 065
  4. THYMOGLOBULIN [Suspect]
     Indication: STEM CELL TRANSPLANT
     Dosage: 40 MG/KG, UNK
     Route: 065
  5. METHYLPREDNISOLONE [Concomitant]
     Indication: PRODUCT USED FOR UNKNOWN INDICATION
     Dosage: UNK
     Route: 065
  6. METHOTREXATE [Concomitant]
     Indication: PROPHYLAXIS AGAINST GRAFT VERSUS HOST DISEASE
     Dosage: UNK
     Route: 065
  7. BUSULFAN [Suspect]
     Indication: EWING'S SARCOMA
  8. FLUDARA [Suspect]
     Indication: EWING'S SARCOMA
     Dosage: 180 MG/M2, UNK
     Route: 065
  9. FLUDARA [Suspect]
     Indication: STEM CELL TRANSPLANT
  10. BUSULFAN [Suspect]
     Indication: STEM CELL TRANSPLANT
     Dosage: 8 MG/KG, UNK
     Route: 065
  11. THYMOGLOBULIN [Suspect]
     Indication: EWING'S SARCOMA

REACTIONS (3)
  - EWING'S SARCOMA METASTATIC [None]
  - ENCEPHALOPATHY [None]
  - ACUTE GRAFT VERSUS HOST DISEASE IN SKIN [None]
